FAERS Safety Report 25915433 (Version 1)
Quarter: 2025Q4

REPORT INFORMATION
  Report Type: Spontaneous
  Country: US (occurrence: US)
  Receive Date: 20251013
  Receipt Date: 20251013
  Transmission Date: 20260118
  Serious: No
  Sender: ANI
  Company Number: US-ANIPHARMA-2025-US-035005

PATIENT
  Age: 66 Year
  Sex: Male
  Weight: 100.7 kg

DRUGS (27)
  1. DULERA 200-5 MCG HFA AER AD [Concomitant]
  2. ASPIRIN 81 MG TAB CHEW [Concomitant]
  3. MONTELUKAST SODIUM [Concomitant]
     Active Substance: MONTELUKAST SODIUM
  4. OMEPRAZOLE [Concomitant]
     Active Substance: OMEPRAZOLE
  5. FENOFIBRATE [Concomitant]
     Active Substance: FENOFIBRATE
  6. TRADJENTA [Concomitant]
     Active Substance: LINAGLIPTIN
  7. AMLODIPINE BESYLATE [Concomitant]
     Active Substance: AMLODIPINE BESYLATE
  8. QUETIAPINE FUMARATE [Concomitant]
     Active Substance: QUETIAPINE FUMARATE
  9. LISINOPRIL [Concomitant]
     Active Substance: LISINOPRIL
  10. MAGNESIUM [Concomitant]
     Active Substance: MAGNESIUM
  11. SERTRALINE HYDROCHLORIDE [Concomitant]
     Active Substance: SERTRALINE HYDROCHLORIDE
  12. METOPROLOL SUCCINATE [Concomitant]
     Active Substance: METOPROLOL SUCCINATE
  13. ATORVASTATIN CALCIUM [Concomitant]
     Active Substance: ATORVASTATIN CALCIUM
  14. FAMOTIDINE [Concomitant]
     Active Substance: FAMOTIDINE
  15. GLIMEPIRIDE [Concomitant]
     Active Substance: GLIMEPIRIDE
  16. FUROSEMIDE [Concomitant]
     Active Substance: FUROSEMIDE
  17. LEVOTHYROXINE SODIUM [Concomitant]
     Active Substance: LEVOTHYROXINE SODIUM
  18. CLOPIDOGREL [Concomitant]
     Active Substance: CLOPIDOGREL BISULFATE
  19. FERROUS SULFATE 324(65)MG TABLET DR [Concomitant]
  20. TRICOR [Concomitant]
     Active Substance: FENOFIBRATE
  21. OXYGEN [Concomitant]
     Active Substance: OXYGEN
  22. DUREZOL 0.05 % DROPS [Concomitant]
  23. VITAMIN D2 [Concomitant]
     Active Substance: ERGOCALCIFEROL
  24. ALBUTEROL SULFATE [Concomitant]
     Active Substance: ALBUTEROL SULFATE
  25. TIOTROPIUM BROMIDE [Concomitant]
     Active Substance: TIOTROPIUM BROMIDE
  26. ALBUTEROL SULFATE [Concomitant]
     Active Substance: ALBUTEROL SULFATE
  27. CORTICOTROPIN [Suspect]
     Active Substance: CORTICOTROPIN
     Indication: Uveitis
     Dosage: 80 UNITS TWICE A WEEK
     Route: 058
     Dates: start: 20250604, end: 20250713

REACTIONS (8)
  - Blood glucose increased [Recovering/Resolving]
  - Anger [Recovering/Resolving]
  - Psychomotor hyperactivity [Recovering/Resolving]
  - Hyperhidrosis [Recovering/Resolving]
  - Erythema [Recovering/Resolving]
  - Glycosylated haemoglobin increased [Recovering/Resolving]
  - Contraindicated product administered [Recovered/Resolved]
  - Therapy cessation [Not Recovered/Not Resolved]

NARRATIVE: CASE EVENT DATE: 20250630
